FAERS Safety Report 11812285 (Version 8)
Quarter: 2016Q2

REPORT INFORMATION
  Report Type: Spontaneous
  Country: US (occurrence: US)
  Receive Date: 20151208
  Receipt Date: 20160609
  Transmission Date: 20160815
  Serious: Yes (Hospitalization, Other)
  Sender: FDA-Public Use
  Company Number: US-GLAXOSMITHKLINE-US2015GSK174465

PATIENT
  Age: 41 Year
  Sex: Female

DRUGS (9)
  1. FLOLAN [Suspect]
     Active Substance: EPOPROSTENOL SODIUM
     Dosage: 9 NG/KG/MIN CONTINUOUS; CONCENTRATION: 15,000 NG/ML; PUMP RATE: 54 ML/DAY; VIAL STRENGTH: 1.5 MG, CO
     Route: 042
     Dates: start: 20100625
  2. REVATIO [Concomitant]
     Active Substance: SILDENAFIL CITRATE
  3. FLOLAN [Suspect]
     Active Substance: EPOPROSTENOL SODIUM
     Indication: PULMONARY HYPERTENSION
     Dosage: 9 NG/KG/MIN, CO
     Route: 042
     Dates: start: 20100625
  4. FLOLAN [Suspect]
     Active Substance: EPOPROSTENOL SODIUM
     Dosage: 9 NG/KG/MIN (CONCENTRATION 15,000 NG/ML, PUMP RATE 54 ML/DAY, VIAL STRENGTH 1.5 MG), CO
  5. SILDENAFIL. [Concomitant]
     Active Substance: SILDENAFIL
  6. SILDENAFIL CITRATE. [Concomitant]
     Active Substance: SILDENAFIL CITRATE
  7. NIFEDIPINE. [Concomitant]
     Active Substance: NIFEDIPINE
  8. FLOLAN [Suspect]
     Active Substance: EPOPROSTENOL SODIUM
     Dosage: 9 NG/KG/MIN, CO
     Route: 042
     Dates: start: 20100625
  9. FLOLAN [Suspect]
     Active Substance: EPOPROSTENOL SODIUM
     Dosage: 9 NG/KG/MIN, CO
     Route: 042

REACTIONS (10)
  - Facial pain [Unknown]
  - Infection [Unknown]
  - Sepsis [Unknown]
  - Intestinal stenosis [Unknown]
  - Influenza [Unknown]
  - Oesophagitis [Unknown]
  - Abdominal pain upper [Unknown]
  - Hospitalisation [Unknown]
  - Pneumonia [Unknown]
  - Emergency care examination [Unknown]

NARRATIVE: CASE EVENT DATE: 20151204
